FAERS Safety Report 5033583-1 (Version None)
Quarter: 2006Q2

REPORT INFORMATION
  Report Type: 
  Country: None (occurrence: None)
  Receive Date: 20060623
  Receipt Date: 20060614
  Transmission Date: 20061013
  Serious: Yes (Hospitalization)
  Sender: FDA-Public Use
  Company Number: US-ROCHE-452036

PATIENT
  Age: 44 Year
  Sex: Female
  Weight: 58.5 kg

DRUGS (3)
  1. PEGASYS [Suspect]
     Route: 058
     Dates: start: 20041231, end: 20060520
  2. LEXAPRO [Concomitant]
     Dosage: DAILY.
     Route: 048
  3. TOPROL-XL [Concomitant]

REACTIONS (1)
  - CEREBROVASCULAR ACCIDENT [None]
